FAERS Safety Report 8136108-7 (Version None)
Quarter: 2012Q1

REPORT INFORMATION
  Report Type: 
  Country: None (occurrence: None)
  Receive Date: 20120214
  Receipt Date: 20111121
  Transmission Date: 20120608
  Serious: No
  Sender: FDA-Public Use
  Company Number: US-COVIDIEN/TYCO HEALTHCARE/MALLINCKRODT-T201102769

PATIENT
  Sex: Female
  Weight: 97.959 kg

DRUGS (7)
  1. PROZAC [Concomitant]
     Indication: DEPRESSION
     Dosage: 20 MG, QD
  2. FENTANYL-100 [Suspect]
     Indication: BACK PAIN
     Dosage: 25 UG/HR,Q 72 HRS
     Route: 062
     Dates: start: 20110801
  3. HYZAAR [Concomitant]
     Indication: BLOOD PRESSURE
     Dosage: 10/25 MG, QD
     Route: 048
  4. ZYRTEC [Concomitant]
     Indication: SEASONAL ALLERGY
     Dosage: 1, QD
  5. JANUVIA [Concomitant]
     Indication: DIABETES MELLITUS
     Dosage: 100 MG, QD
     Route: 048
  6. GLIMEPIRIDE [Concomitant]
     Indication: DIABETES MELLITUS
     Dosage: 2 MG, QD ONE HALF TABLET
     Route: 048
  7. NORVASC [Concomitant]
     Indication: BLOOD PRESSURE
     Dosage: 10 MG, QD
     Route: 048

REACTIONS (3)
  - APPLICATION SITE ERYTHEMA [None]
  - APPLICATION SITE VESICLES [None]
  - APPLICATION SITE PRURITUS [None]
